FAERS Safety Report 5980244-8 (Version None)
Quarter: 2008Q4

REPORT INFORMATION
  Report Type: 
  Country: None (occurrence: None)
  Receive Date: 20081205
  Receipt Date: 20081125
  Transmission Date: 20090506
  Serious: Yes (Hospitalization)
  Sender: FDA-Public Use
  Company Number: PHHY2008DE30067

PATIENT
  Sex: Male

DRUGS (6)
  1. DIOVAN [Suspect]
     Dosage: 320 MG, DAILY
     Route: 048
     Dates: start: 20080701, end: 20080801
  2. DIOVAN [Suspect]
     Dosage: 480 MG, DAILY
     Route: 048
     Dates: start: 20080801, end: 20081101
  3. RAMIPRIL [Concomitant]
     Dosage: UNK
  4. BISOPROLOL FUMARATE [Concomitant]
  5. IBEROGAST [Concomitant]
  6. MCP ^TEMMLER^ [Concomitant]

REACTIONS (5)
  - ABDOMINAL DISCOMFORT [None]
  - AGEUSIA [None]
  - BLOOD PRESSURE INADEQUATELY CONTROLLED [None]
  - DIARRHOEA [None]
  - DYSGEUSIA [None]
